FAERS Safety Report 11398331 (Version 1)
Quarter: 2015Q3

REPORT INFORMATION
  Report Type: Spontaneous
  Country: US (occurrence: US)
  Receive Date: 20150820
  Receipt Date: 20150820
  Transmission Date: 20151125
  Serious: Yes (Other)
  Sender: FDA-Public Use
  Company Number: US-ASTRAZENECA-2015SE78885

PATIENT
  Sex: Female

DRUGS (11)
  1. VALSARTAN AND HYDROCHLOROTHIAZIDE [Concomitant]
     Active Substance: HYDROCHLOROTHIAZIDE\VALSARTAN
  2. ESTROVESTIN [Concomitant]
  3. NEXIUM [Suspect]
     Active Substance: ESOMEPRAZOLE MAGNESIUM
     Route: 048
  4. GLYBURIDE. [Concomitant]
     Active Substance: GLYBURIDE
  5. SIMBASTATIN [Concomitant]
  6. METOPROLOL [Suspect]
     Active Substance: METOPROLOL
     Route: 065
  7. VENTRIILIN [Concomitant]
  8. ASPIRIN. [Concomitant]
     Active Substance: ASPIRIN
  9. ELIGLITAZONE [Concomitant]
  10. CLONIBINE [Concomitant]
  11. METFORMIN [Concomitant]
     Active Substance: METFORMIN HYDROCHLORIDE

REACTIONS (4)
  - Diabetes mellitus [Unknown]
  - Joint injury [Unknown]
  - Aneurysm [Unknown]
  - Activities of daily living impaired [Unknown]
